FAERS Safety Report 17906134 (Version 1)
Quarter: 2020Q2

REPORT INFORMATION
  Report Type: Spontaneous
  Country: US (occurrence: US)
  Receive Date: 20200616
  Receipt Date: 20200616
  Transmission Date: 20200714
  Serious: No
  Sender: FDA-Public Use
  Company Number: US-ROCHE-2334466

PATIENT
  Age: 60 Year
  Sex: Female

DRUGS (1)
  1. ACTEMRA [Suspect]
     Active Substance: TOCILIZUMAB
     Indication: PRODUCT USED FOR UNKNOWN INDICATION
     Dosage: FREQUENCY: OTHER
     Route: 058
     Dates: start: 20190101

REACTIONS (4)
  - Upper-airway cough syndrome [Unknown]
  - Nasal discharge discolouration [Unknown]
  - Paranasal sinus discomfort [Unknown]
  - Sinus congestion [Unknown]

NARRATIVE: CASE EVENT DATE: 20190606
